FAERS Safety Report 10173138 (Version 1)
Quarter: 2014Q2

REPORT INFORMATION
  Report Type: Spontaneous
  Country: US (occurrence: US)
  Receive Date: 20140515
  Receipt Date: 20140515
  Transmission Date: 20141212
  Serious: No
  Sender: FDA-Public Use
  Company Number: US-PFIZER INC-2014129193

PATIENT
  Age: 69 Year
  Sex: Female

DRUGS (28)
  1. ACCUPRIL [Suspect]
     Dosage: UNK
  2. INDERAL [Suspect]
     Dosage: UNK
  3. SINEQUAN [Suspect]
     Dosage: UNK
  4. TIGAN [Suspect]
     Dosage: UNK
  5. VERAPAMIL HCL [Suspect]
     Dosage: UNK
  6. SODIUM CROMOGLICATE [Suspect]
     Dosage: UNK
  7. BETAMETHASONE [Suspect]
     Dosage: UNK
  8. GALANTAMINE [Suspect]
     Dosage: UNK
  9. ALOCRIL [Suspect]
     Dosage: UNK
  10. CARBOCAINE [Suspect]
     Dosage: UNK
  11. CLARITIN-D [Suspect]
     Dosage: UNK
  12. CODEINE [Suspect]
     Dosage: UNK
  13. DARBID [Suspect]
     Dosage: UNK
  14. DEMEROL [Suspect]
     Dosage: UNK
  15. DILAUDID [Suspect]
     Dosage: UNK
  16. LUNESTA [Suspect]
     Dosage: UNK
  17. NEMBUTAL SODIUM [Suspect]
     Dosage: UNK
  18. PAMELOR [Suspect]
     Dosage: UNK
  19. PERCODAN [Suspect]
     Dosage: UNK
  20. PLENDIL [Suspect]
     Dosage: UNK
  21. QUININE [Suspect]
     Dosage: UNK
  22. PENTOTHAL SODIUM [Suspect]
     Dosage: UNK
  23. SULAR [Suspect]
     Dosage: UNK
  24. THORAZINE [Suspect]
     Dosage: UNK
  25. VALIUM [Suspect]
     Dosage: UNK
  26. VOLTAREN [Suspect]
     Dosage: UNK
  27. WELLBUTRIN [Suspect]
     Dosage: UNK
  28. WYDASE [Suspect]
     Dosage: UNK

REACTIONS (1)
  - Drug hypersensitivity [Unknown]
